FAERS Safety Report 7930297-2 (Version None)
Quarter: 2011Q4

REPORT INFORMATION
  Report Type: 
  Country: None (occurrence: None)
  Receive Date: 20111121
  Receipt Date: 20111110
  Transmission Date: 20120403
  Serious: Yes (Hospitalization)
  Sender: FDA-Public Use
  Company Number: BR-US-EMD SERONO, INC.-7095434

PATIENT
  Sex: Female

DRUGS (2)
  1. REBIF [Suspect]
  2. REBIF [Suspect]
     Indication: MULTIPLE SCLEROSIS
     Dates: start: 20111010

REACTIONS (7)
  - MULTIPLE SCLEROSIS RELAPSE [None]
  - DEPRESSION [None]
  - HEADACHE [None]
  - PYREXIA [None]
  - RHINITIS [None]
  - ANXIETY [None]
  - INJECTION SITE ERYTHEMA [None]
